FAERS Safety Report 6458780-X (Version None)
Quarter: 2009Q4

REPORT INFORMATION
  Report Type: 
  Country: None (occurrence: None)
  Receive Date: 20091120
  Receipt Date: 20091104
  Transmission Date: 20100525
  Serious: Yes (Life-Threatening, Hospitalization)
  Sender: FDA-Public Use
  Company Number: CTI_01075_2009

PATIENT
  Sex: Male

DRUGS (4)
  1. SPECTRACEF     (MEIACT MS -CEFDITOREN PIVOXIL) [Suspect]
     Indication: PHARYNGITIS
     Dosage: (300 MG ORAL)
     Route: 048
     Dates: start: 20091008, end: 20091013
  2. SPECTRACEF     (MEIACT MS -CEFDITOREN PIVOXIL) [Suspect]
     Indication: UPPER RESPIRATORY TRACT INFLAMMATION
     Dosage: (300 MG ORAL)
     Route: 048
     Dates: start: 20091008, end: 20091013
  3. LOXOPROFEN SODIUM         (LOXOPROFEN SODIUM HYDRATE) [Suspect]
     Indication: PHARYNGITIS
     Dosage: (180 MG ORAL)
     Route: 048
     Dates: start: 20091008, end: 20091013
  4. LOXOPROFEN SODIUM         (LOXOPROFEN SODIUM HYDRATE) [Suspect]
     Indication: UPPER RESPIRATORY TRACT INFLAMMATION
     Dosage: (180 MG ORAL)
     Route: 048
     Dates: start: 20091008, end: 20091013

REACTIONS (5)
  - DECREASED APPETITE [None]
  - HEPATIC FUNCTION ABNORMAL [None]
  - HEPATITIS FULMINANT [None]
  - JAUNDICE [None]
  - PYREXIA [None]
